FAERS Safety Report 7203010-4 (Version None)
Quarter: 2010Q4

REPORT INFORMATION
  Report Type: 
  Country: None (occurrence: None)
  Receive Date: 20101229
  Receipt Date: 20101229
  Transmission Date: 20110411
  Serious: Yes (Other)
  Sender: FDA-Public Use
  Company Number: US-MYLANLABS-2010S1023320

PATIENT
  Age: 15 Year
  Sex: Male

DRUGS (2)
  1. AMNESTEEM [Suspect]
     Indication: ACNE
     Route: 048
     Dates: start: 20101031, end: 20101129
  2. AMNESTEEM [Suspect]
     Route: 048
     Dates: start: 20101130, end: 20101215

REACTIONS (2)
  - DEPRESSION [None]
  - SUICIDAL IDEATION [None]
